FAERS Safety Report 24607712 (Version 2)
Quarter: 2024Q4

REPORT INFORMATION
  Report Type: Spontaneous
  Country: JP (occurrence: None)
  Receive Date: 20241112
  Receipt Date: 20241205
  Transmission Date: 20250114
  Serious: Yes (Death, Other)
  Sender: ALEXION PHARMACEUTICALS
  Company Number: JP-ASTRAZENECA-240105167_013820_P_1

PATIENT
  Age: 76 Year

DRUGS (16)
  1. ACALABRUTINIB [Suspect]
     Active Substance: ACALABRUTINIB
     Indication: Chronic lymphocytic leukaemia
     Dosage: DOSE UNKNOWN
  2. ACALABRUTINIB [Suspect]
     Active Substance: ACALABRUTINIB
     Dosage: DOSE UNKNOWN
  3. ACALABRUTINIB [Suspect]
     Active Substance: ACALABRUTINIB
     Dosage: DOSE UNKNOWN
  4. ACALABRUTINIB [Suspect]
     Active Substance: ACALABRUTINIB
     Dosage: DOSE UNKNOWN
  5. ACALABRUTINIB [Suspect]
     Active Substance: ACALABRUTINIB
     Dosage: DOSE UNKNOWN
  6. ACALABRUTINIB [Suspect]
     Active Substance: ACALABRUTINIB
     Dosage: DOSE UNKNOWN
  7. ACALABRUTINIB [Suspect]
     Active Substance: ACALABRUTINIB
     Dosage: DOSE UNKNOWN
  8. ACALABRUTINIB [Suspect]
     Active Substance: ACALABRUTINIB
     Dosage: DOSE UNKNOWN
  9. OBINUTUZUMAB(GENETICAL RECOMBINATION) [Concomitant]
     Indication: Chronic lymphocytic leukaemia
     Dosage: DOSE UNKNOWN
  10. OBINUTUZUMAB(GENETICAL RECOMBINATION) [Concomitant]
     Dosage: DOSE UNKNOWN
     Route: 065
  11. OBINUTUZUMAB(GENETICAL RECOMBINATION) [Concomitant]
     Dosage: DOSE UNKNOWN
  12. OBINUTUZUMAB(GENETICAL RECOMBINATION) [Concomitant]
     Dosage: DOSE UNKNOWN
     Route: 065
  13. OBINUTUZUMAB(GENETICAL RECOMBINATION) [Concomitant]
     Dosage: DOSE UNKNOWN
  14. OBINUTUZUMAB(GENETICAL RECOMBINATION) [Concomitant]
     Dosage: DOSE UNKNOWN
     Route: 065
  15. OBINUTUZUMAB(GENETICAL RECOMBINATION) [Concomitant]
     Dosage: DOSE UNKNOWN
  16. OBINUTUZUMAB(GENETICAL RECOMBINATION) [Concomitant]
     Dosage: DOSE UNKNOWN
     Route: 065

REACTIONS (1)
  - Malignant neoplasm progression [Fatal]
